FAERS Safety Report 6347704-1 (Version None)
Quarter: 2009Q3

REPORT INFORMATION
  Report Type: 
  Country: None (occurrence: None)
  Receive Date: 20090910
  Receipt Date: 20090831
  Transmission Date: 20100115
  Serious: Yes (Hospitalization)
  Sender: FDA-Public Use
  Company Number: BR-PFIZER INC-2009261726

PATIENT
  Age: 79 Year

DRUGS (1)
  1. NEURONTIN [Suspect]
     Indication: HERPES ZOSTER INFECTION NEUROLOGICAL
     Dosage: 400 MG, 2X/DAY
     Route: 048
     Dates: start: 20090501

REACTIONS (3)
  - GASTRIC HAEMORRHAGE [None]
  - INTESTINAL HAEMORRHAGE [None]
  - WEIGHT DECREASED [None]
